FAERS Safety Report 20146252 (Version 2)
Quarter: 2022Q1

REPORT INFORMATION
  Report Type: Spontaneous
  Country: JP (occurrence: JP)
  Receive Date: 20211203
  Receipt Date: 20220203
  Transmission Date: 20220423
  Serious: Yes (Other)
  Sender: FDA-Public Use
  Company Number: JP-FERRINGPH-2021FE05542

PATIENT
  Age: 80 Year
  Sex: Male

DRUGS (7)
  1. DEGARELIX [Suspect]
     Active Substance: DEGARELIX
     Indication: Prostate cancer
     Dosage: 240 MG, ONCE/SINGLE
     Route: 058
     Dates: start: 20201211
  2. DEGARELIX [Suspect]
     Active Substance: DEGARELIX
     Dosage: 80 MG, MONTHLY
     Route: 058
     Dates: start: 20210108
  3. XTANDI [Suspect]
     Active Substance: ENZALUTAMIDE
     Indication: Prostate cancer
     Dosage: 120 MG, 1 TIME DAILY
     Route: 048
     Dates: start: 20220114
  4. XTANDI [Suspect]
     Active Substance: ENZALUTAMIDE
     Dosage: 80 MG, 1 TIME DAILY
     Route: 048
     Dates: start: 20211015, end: 20211119
  5. XTANDI [Suspect]
     Active Substance: ENZALUTAMIDE
     Dosage: 120 MG, 1 TIME DAILY
     Route: 048
     Dates: start: 20210702, end: 20211014
  6. XTANDI [Suspect]
     Active Substance: ENZALUTAMIDE
     Dosage: 80 MG, 1 TIME DAILY
     Route: 048
     Dates: start: 20210604, end: 20210701
  7. XTANDI [Suspect]
     Active Substance: ENZALUTAMIDE
     Dosage: 160 MG, 1 TIME DAILY
     Route: 048
     Dates: start: 20201211, end: 20210603

REACTIONS (4)
  - Neutropenia [Recovered/Resolved]
  - Neutropenia [Recovered/Resolved]
  - Taste disorder [Recovered/Resolved]
  - Taste disorder [Not Recovered/Not Resolved]

NARRATIVE: CASE EVENT DATE: 20210108
